FAERS Safety Report 7230744-8 (Version None)
Quarter: 2011Q1

REPORT INFORMATION
  Report Type: 
  Country: None (occurrence: None)
  Receive Date: 20110118
  Receipt Date: 20110111
  Transmission Date: 20110831
  Serious: No
  Sender: FDA-Public Use
  Company Number: US-PFIZER INC-US-WYE-H16238510

PATIENT
  Age: 66 Year
  Sex: Male
  Weight: 74.8 kg

DRUGS (3)
  1. CENTRUM SILVER [Suspect]
     Indication: NUTRITIONAL SUPPORT
     Dosage: 1.0 DF, 1X/DAY
     Route: 048
     Dates: start: 20100501, end: 20100627
  2. LIPITOR [Suspect]
     Indication: HYPERCHOLESTEROLAEMIA
     Dosage: 10.0 MG, 1X/DAY
     Route: 048
     Dates: end: 20100627
  3. LIPITOR [Suspect]
     Dosage: 10.0 MG, 1X/DAY
     Route: 048
     Dates: start: 20100629

REACTIONS (1)
  - MUSCULOSKELETAL STIFFNESS [None]
